FAERS Safety Report 23420843 (Version 1)
Quarter: 2024Q1

REPORT INFORMATION
  Report Type: Other
  Country: FR (occurrence: None)
  Receive Date: 20240119
  Receipt Date: 20240119
  Transmission Date: 20240410
  Serious: Yes (Other)
  Sender: FDA-Public Use
  Company Number: FR-ROCHE-3444712

PATIENT

DRUGS (5)
  1. RITUXIMAB [Suspect]
     Active Substance: RITUXIMAB
     Indication: Angioedema
     Dosage: 1 G DAY 1-DAY 15 (N=9), OR 375 MG / M2 / WEEK X4 (N=21).
     Route: 042
  2. RITUXIMAB [Suspect]
     Active Substance: RITUXIMAB
     Indication: Acquired C1 inhibitor deficiency
  3. ICATIBANT [Concomitant]
     Active Substance: ICATIBANT ACETATE
  4. TRANEXAMIC ACID [Concomitant]
     Active Substance: TRANEXAMIC ACID
  5. DANAZOL [Concomitant]
     Active Substance: DANAZOL

REACTIONS (3)
  - Anaphylactoid reaction [Unknown]
  - Off label use [Unknown]
  - Secondary immunodeficiency [Unknown]
